FAERS Safety Report 12349328 (Version 1)
Quarter: 2016Q2

REPORT INFORMATION
  Report Type: Spontaneous
  Country: US (occurrence: US)
  Receive Date: 20160509
  Receipt Date: 20160509
  Transmission Date: 20160815
  Serious: No
  Sender: FDA-Public Use
  Company Number: US-SHIRE-US201605664

PATIENT
  Age: 4 Year
  Sex: Male
  Weight: 25.22 kg

DRUGS (1)
  1. ELAPRASE [Suspect]
     Active Substance: IDURSULFASE
     Indication: PRODUCT USED FOR UNKNOWN INDICATION
     Dosage: 18 MG, 1X/WEEK
     Route: 041

REACTIONS (2)
  - Infusion related reaction [Unknown]
  - Rash [Unknown]

NARRATIVE: CASE EVENT DATE: 20160429
